FAERS Safety Report 4465513-5 (Version None)
Quarter: 2004Q4

REPORT INFORMATION
  Report Type: 
  Country: None (occurrence: None)
  Receive Date: 20041004
  Receipt Date: 20031121
  Transmission Date: 20050328
  Serious: No
  Sender: FDA-Public Use
  Company Number: US-GLAXOSMITHKLINE-A0440799A

PATIENT
  Age: 14 Year
  Sex: Male

DRUGS (1)
  1. IMITREX [Suspect]
     Indication: MIGRAINE
     Dosage: 5MG AS REQUIRED
     Route: 045
     Dates: start: 20031121

REACTIONS (1)
  - HAEMATEMESIS [None]
